FAERS Safety Report 10306448 (Version 2)
Quarter: 2014Q4

REPORT INFORMATION
  Report Type: Spontaneous
  Country: AR (occurrence: AR)
  Receive Date: 20140715
  Receipt Date: 20141002
  Transmission Date: 20150528
  Serious: Yes (Hospitalization, Other)
  Sender: FDA-Public Use
  Company Number: AR-VERTEX PHARMACEUTICALS INC-2014-003123

PATIENT
  Age: 60 Year
  Sex: Female

DRUGS (3)
  1. INTERFERON NOS [Suspect]
     Active Substance: INTERFERON
     Indication: HEPATITIS C
     Route: 065
  2. INCIVO [Suspect]
     Active Substance: TELAPREVIR
     Indication: HEPATITIS C
     Dosage: 750 MG, UNK
     Route: 048
     Dates: start: 20140505, end: 20140703
  3. RIBAVIRIN. [Suspect]
     Active Substance: RIBAVIRIN
     Indication: HEPATITIS C
     Route: 065

REACTIONS (5)
  - Pneumonia [Recovered/Resolved]
  - Infection [Recovered/Resolved]
  - Blindness transient [Unknown]
  - Anaemia [Recovered/Resolved]
  - Off label use [Unknown]
